FAERS Safety Report 14915149 (Version 2)
Quarter: 2018Q2

REPORT INFORMATION
  Report Type: Not Available
  Country: US (occurrence: US)
  Receive Date: 20180518
  Receipt Date: 20180626
  Transmission Date: 20180711
  Serious: No
  Sender: FDA-Public Use
  Company Number: US-NEUROCRINE BIOSCIENCES INC.-2018NBI01432

PATIENT
  Sex: Female

DRUGS (13)
  1. PRAZOSIN. [Concomitant]
     Active Substance: PRAZOSIN
  2. PRISTIQ EXTENDED-RELEASE [Concomitant]
     Active Substance: DESVENLAFAXINE SUCCINATE
  3. FERROUS SULFATE. [Concomitant]
     Active Substance: FERROUS SULFATE
  4. MELATONIN [Concomitant]
     Active Substance: MELATONIN
  5. LORATADINE. [Concomitant]
     Active Substance: LORATADINE
  6. CLONAZEPAM. [Concomitant]
     Active Substance: CLONAZEPAM
  7. OSCAL [Concomitant]
     Active Substance: CALCIUM CARBONATE
  8. PRAZOLE [Concomitant]
  9. INGREZZA [Suspect]
     Active Substance: VALBENAZINE
     Indication: TARDIVE DYSKINESIA
     Route: 048
     Dates: start: 20171005, end: 20171011
  10. INGREZZA [Suspect]
     Active Substance: VALBENAZINE
     Dates: start: 20171012
  11. MULTIVITAMIN [Concomitant]
     Active Substance: VITAMINS
  12. VITAMIN B6 [Concomitant]
     Active Substance: PYRIDOXINE HYDROCHLORIDE
  13. PROPANOLOL [Concomitant]
     Active Substance: PROPRANOLOL HYDROCHLORIDE

REACTIONS (2)
  - Abnormal dreams [Unknown]
  - Tremor [Not Recovered/Not Resolved]

NARRATIVE: CASE EVENT DATE: 2018
